FAERS Safety Report 7570081 (Version 11)
Quarter: 2014Q4

REPORT INFORMATION
  Report Type: Spontaneous
  Country: JP (occurrence: JP)
  Receive Date: 20100901
  Receipt Date: 20141114
  Transmission Date: 20150529
  Serious: Yes (Death, Hospitalization, Disabling, Other)
  Sender: FDA-Public Use
  Company Number: PHHY2010JP36326

PATIENT
  Age: 62 Year
  Sex: Female
  Weight: 87 kg

DRUGS (8)
  1. ZYLORIC [Concomitant]
     Active Substance: ALLOPURINOL
     Dosage: 200 MG, UNK
     Route: 048
     Dates: start: 20100422, end: 20100713
  2. RINDERON V [Concomitant]
     Active Substance: BETAMETHASONE VALERATE
     Indication: METASTATIC RENAL CELL CARCINOMA
     Dosage: 1 MG, UNK
     Route: 048
     Dates: start: 20100422
  3. MORPHINE HYDROCHLORIDE [Concomitant]
     Active Substance: MORPHINE HYDROCHLORIDE
     Indication: DYSPNOEA
     Dosage: 50 MG, UNK
     Route: 048
     Dates: start: 20100728
  4. TAKEPRON [Concomitant]
     Active Substance: LANSOPRAZOLE
     Dosage: 30 MG, UNK
     Route: 048
     Dates: start: 20100422, end: 20100713
  5. FLOMOX [Concomitant]
     Active Substance: CEFCAPENE PIVOXIL HYDROCHLORIDE HYDRATE
     Dosage: 300 MG, UNK
     Route: 058
     Dates: start: 20100713, end: 20100728
  6. FUROSEMIDE. [Concomitant]
     Active Substance: FUROSEMIDE
     Dosage: 40 MG, UNK
     Route: 048
     Dates: start: 20100520
  7. SELBEX [Concomitant]
     Active Substance: TEPRENONE
     Dosage: 100 MG, UNK
     Route: 048
     Dates: start: 20100422, end: 20100713
  8. AFINITOR [Suspect]
     Active Substance: EVEROLIMUS
     Indication: METASTATIC RENAL CELL CARCINOMA
     Dosage: 10 MG, DAILY
     Route: 048
     Dates: start: 20100422, end: 20100521

REACTIONS (27)
  - General physical health deterioration [Unknown]
  - Pulmonary oedema [Unknown]
  - Haematocrit decreased [Unknown]
  - Pyrexia [Unknown]
  - Dyspnoea [Unknown]
  - Lymphocyte count decreased [Unknown]
  - Red blood cell count decreased [Unknown]
  - Back pain [Recovering/Resolving]
  - Malignant neoplasm progression [Fatal]
  - Generalised oedema [Unknown]
  - Renal impairment [Not Recovered/Not Resolved]
  - Interstitial lung disease [Recovered/Resolved]
  - Lung disorder [Recovering/Resolving]
  - Respiratory disorder [Recovering/Resolving]
  - Karnofsky scale worsened [Unknown]
  - Metastases to central nervous system [Unknown]
  - Blood lactate dehydrogenase increased [Unknown]
  - Haemoglobin decreased [Unknown]
  - Cellulitis [Recovering/Resolving]
  - Liver function test abnormal [Unknown]
  - Cough [Unknown]
  - Blood glucose increased [Unknown]
  - Nasopharyngitis [Unknown]
  - Blood creatinine increased [Unknown]
  - Blood urea increased [Not Recovered/Not Resolved]
  - Acalculia [Recovering/Resolving]
  - Apraxia [Recovering/Resolving]

NARRATIVE: CASE EVENT DATE: 20100422
